FAERS Safety Report 18576701 (Version 1)
Quarter: 2020Q4

REPORT INFORMATION
  Report Type: Spontaneous
  Country: AT (occurrence: AT)
  Receive Date: 20201203
  Receipt Date: 20201203
  Transmission Date: 20210114
  Serious: Yes (Death, Other)
  Sender: FDA-Public Use
  Company Number: AT-MALLINCKRODT-T202005676

PATIENT

DRUGS (4)
  1. MYCOPHENOLATE MOFETIL. [Concomitant]
     Active Substance: MYCOPHENOLATE MOFETIL
     Indication: IMMUNOSUPPRESSION
     Dosage: 2 MILLIGRAM, QD
     Route: 065
  2. TACROLIMUS. [Concomitant]
     Active Substance: TACROLIMUS
     Indication: IMMUNOSUPPRESSION
     Dosage: UNK, (TARGET RANGE 7-10NG/ML IN MONTH 1-3, 5-10NG/ML }3 MONTHS)
     Route: 065
  3. UVADEX [Suspect]
     Active Substance: METHOXSALEN
     Indication: PROPHYLAXIS AGAINST TRANSPLANT REJECTION
     Dosage: UNK (EXTRACORPOREAL), (ON DAYS 2 + 3, 5 + 6, 10 + 11, 17 + 18, 27 + 28, 2 TIMES EVERY OTHER WEEK)
     Route: 050
  4. UVADEX [Suspect]
     Active Substance: METHOXSALEN
     Dosage: UNK (EXTRACORPOREAL), (2 TIMES EVERY 4 WEEKS MONTH 4 - 6 AFTER HTX)
     Route: 050

REACTIONS (5)
  - Pneumonia bacterial [Unknown]
  - Pneumonia fungal [Unknown]
  - Drug ineffective for unapproved indication [Unknown]
  - Wound infection [Unknown]
  - Multiple organ dysfunction syndrome [Fatal]
